FAERS Safety Report 4394079-3 (Version None)
Quarter: 2004Q3

REPORT INFORMATION
  Report Type: 
  Country: None (occurrence: None)
  Receive Date: 20040708
  Receipt Date: 20040708
  Transmission Date: 20050211
  Serious: Yes (Hospitalization)
  Sender: FDA-Public Use
  Company Number: None

PATIENT
  Age: 68 Year
  Sex: Male

DRUGS (3)
  1. VINCRISTINE [Suspect]
     Indication: BLADDER CANCER
     Dosage: AS ABOVE
     Dates: start: 20040624
  2. DOXORUBICIN HCL [Suspect]
     Dates: start: 20040624
  3. CISPLATIN [Suspect]
     Dates: start: 20040624

REACTIONS (1)
  - DEHYDRATION [None]
